FAERS Safety Report 25199639 (Version 2)
Quarter: 2025Q2

REPORT INFORMATION
  Report Type: Spontaneous
  Country: US (occurrence: US)
  Receive Date: 20250415
  Receipt Date: 20250605
  Transmission Date: 20250717
  Serious: Yes (Other)
  Sender: ELI LILLY AND COMPANY
  Company Number: US-ELI_LILLY_AND_COMPANY-US202504005085

PATIENT
  Age: 72 Year
  Sex: Female
  Weight: 98.866 kg

DRUGS (15)
  1. MOUNJARO [Interacting]
     Active Substance: TIRZEPATIDE
     Indication: Type 2 diabetes mellitus
     Dosage: 2.5 MG, WEEKLY (1/W)
     Route: 058
  2. MOUNJARO [Interacting]
     Active Substance: TIRZEPATIDE
     Indication: Type 2 diabetes mellitus
     Dosage: 2.5 MG, WEEKLY (1/W)
     Route: 058
  3. MOUNJARO [Interacting]
     Active Substance: TIRZEPATIDE
     Indication: Type 2 diabetes mellitus
     Dosage: 2.5 MG, WEEKLY (1/W)
     Route: 058
  4. MOUNJARO [Interacting]
     Active Substance: TIRZEPATIDE
     Indication: Type 2 diabetes mellitus
     Dosage: 2.5 MG, WEEKLY (1/W)
     Route: 058
  5. MOUNJARO [Interacting]
     Active Substance: TIRZEPATIDE
     Indication: Type 2 diabetes mellitus
     Dosage: 5 MG, WEEKLY (1/W)
     Route: 058
     Dates: start: 20250120, end: 20250401
  6. MOUNJARO [Interacting]
     Active Substance: TIRZEPATIDE
     Indication: Type 2 diabetes mellitus
     Dosage: 5 MG, WEEKLY (1/W)
     Route: 058
     Dates: start: 20250120, end: 20250401
  7. MOUNJARO [Interacting]
     Active Substance: TIRZEPATIDE
     Indication: Type 2 diabetes mellitus
     Dosage: 5 MG, WEEKLY (1/W)
     Route: 058
     Dates: start: 20250120, end: 20250401
  8. MOUNJARO [Interacting]
     Active Substance: TIRZEPATIDE
     Indication: Type 2 diabetes mellitus
     Dosage: 5 MG, WEEKLY (1/W)
     Route: 058
     Dates: start: 20250120, end: 20250401
  9. MOUNJARO [Interacting]
     Active Substance: TIRZEPATIDE
     Dosage: 5 MG, WEEKLY (1/W)
     Route: 058
     Dates: start: 20250409
  10. MOUNJARO [Interacting]
     Active Substance: TIRZEPATIDE
     Dosage: 5 MG, WEEKLY (1/W)
     Route: 058
     Dates: start: 20250409
  11. MOUNJARO [Interacting]
     Active Substance: TIRZEPATIDE
     Dosage: 5 MG, WEEKLY (1/W)
     Route: 058
     Dates: start: 20250409
  12. MOUNJARO [Interacting]
     Active Substance: TIRZEPATIDE
     Dosage: 5 MG, WEEKLY (1/W)
     Route: 058
     Dates: start: 20250409
  13. MELOXICAM [Interacting]
     Active Substance: MELOXICAM
     Indication: Arthritis
     Route: 065
  14. SIMVASTATIN [Concomitant]
     Active Substance: SIMVASTATIN
     Indication: High density lipoprotein
     Dates: start: 20180207
  15. SIMVASTATIN [Concomitant]
     Active Substance: SIMVASTATIN

REACTIONS (4)
  - Hepatic enzyme increased [Recovering/Resolving]
  - Drug interaction [Unknown]
  - Hepatic steatosis [Unknown]
  - Constipation [Unknown]

NARRATIVE: CASE EVENT DATE: 20250331
